FAERS Safety Report 25108896 (Version 1)
Quarter: 2025Q1

REPORT INFORMATION
  Report Type: Report from Study
  Country: GB (occurrence: GB)
  Receive Date: 20250322
  Receipt Date: 20250322
  Transmission Date: 20250409
  Serious: Yes (Other)
  Sender: CELLTRION
  Company Number: GB-CELLTRION INC.-2025GB008268

PATIENT

DRUGS (1)
  1. ADALIMUMAB-AATY [Suspect]
     Active Substance: ADALIMUMAB-AATY
     Indication: Hidradenitis
     Route: 058
     Dates: start: 202501

REACTIONS (8)
  - Seizure [Unknown]
  - Loss of consciousness [Unknown]
  - Cold sweat [Unknown]
  - Mydriasis [Unknown]
  - Tongue biting [Unknown]
  - Pallor [Unknown]
  - Hyperhidrosis [Unknown]
  - Dizziness [Unknown]
